FAERS Safety Report 19999975 (Version 1)
Quarter: 2021Q4

REPORT INFORMATION
  Report Type: Spontaneous
  Country: US (occurrence: US)
  Receive Date: 20211027
  Receipt Date: 20211027
  Transmission Date: 20220303
  Serious: Yes (Other)
  Sender: FDA-Public Use
  Company Number: US-AMGEN-USASP2021165326

PATIENT
  Age: 70 Year
  Sex: Female

DRUGS (2)
  1. ENBREL [Suspect]
     Active Substance: ETANERCEPT
     Indication: Rheumatoid arthritis
     Dosage: 50 MILLIGRAM, QWK
     Route: 058
  2. COVID-19 VACCINE [Concomitant]
     Dosage: UNK

REACTIONS (4)
  - Internal haemorrhage [Unknown]
  - Hypertension [Unknown]
  - Tremor [Unknown]
  - Product storage error [Unknown]

NARRATIVE: CASE EVENT DATE: 20211015
